FAERS Safety Report 7796741-9 (Version None)
Quarter: 2011Q4

REPORT INFORMATION
  Report Type: 
  Country: None (occurrence: None)
  Receive Date: 20111005
  Receipt Date: 20110916
  Transmission Date: 20120403
  Serious: Yes (Hospitalization)
  Sender: FDA-Public Use
  Company Number: FR-AMGEN-FRASP2011046532

PATIENT
  Sex: Female
  Weight: 54 kg

DRUGS (6)
  1. NEULASTA [Suspect]
     Indication: CHEMOTHERAPY
     Dosage: 6 MG, ONE TIME DOSE
     Dates: start: 20110903, end: 20110903
  2. ANTINEOPLASTIC AGENTS [Concomitant]
     Indication: LUNG NEOPLASM MALIGNANT
  3. CISPLATIN [Suspect]
     Indication: CHEMOTHERAPY
     Dosage: 160 MG, QD
     Route: 042
     Dates: start: 20110901, end: 20110901
  4. EPIRUBICIN [Suspect]
     Indication: CHEMOTHERAPY
     Dosage: 65 MG, QD
     Route: 042
     Dates: start: 20110831, end: 20110831
  5. CYCLOPHOSPHAMIDE [Suspect]
     Indication: CHEMOTHERAPY
     Dosage: 630 MG, QD
     Route: 042
     Dates: start: 20110831, end: 20110902
  6. ETOPOSIDE [Suspect]
     Indication: CHEMOTHERAPY
     Dosage: 160 MG, QD
     Route: 042
     Dates: start: 20110831, end: 20110902

REACTIONS (1)
  - NEUTROPENIA [None]
